FAERS Safety Report 7244031-5 (Version None)
Quarter: 2011Q1

REPORT INFORMATION
  Report Type: 
  Country: None (occurrence: None)
  Receive Date: 20110125
  Receipt Date: 20110111
  Transmission Date: 20110831
  Serious: Yes (Hospitalization)
  Sender: FDA-Public Use
  Company Number: US-ELI_LILLY_AND_COMPANY-US201010006286

PATIENT
  Sex: Female

DRUGS (7)
  1. FORTEO [Suspect]
     Dosage: 20 UG, DAILY (1/D)
  2. VITAMIN D [Concomitant]
  3. PLAQUENIL [Concomitant]
  4. PREDNISONE [Concomitant]
  5. FORTEO [Suspect]
     Indication: OSTEOPOROSIS
     Dosage: 20 UG, DAILY (1/D)
     Dates: start: 20100708
  6. CITRACAL [Concomitant]
  7. DARVOCET [Concomitant]
     Indication: PAIN

REACTIONS (16)
  - CONSTIPATION [None]
  - DIARRHOEA [None]
  - MUSCULOSKELETAL PAIN [None]
  - DISCOMFORT [None]
  - BACK PAIN [None]
  - CONTUSION [None]
  - INJECTION SITE ERYTHEMA [None]
  - HEADACHE [None]
  - NECK PAIN [None]
  - PNEUMONIA [None]
  - SPINAL COMPRESSION FRACTURE [None]
  - BACK INJURY [None]
  - FATIGUE [None]
  - BODY TEMPERATURE INCREASED [None]
  - JOINT CREPITATION [None]
  - PAIN [None]
